FAERS Safety Report 9457817 (Version 1)
Quarter: 2013Q3

REPORT INFORMATION
  Report Type: Spontaneous
  Country: DE (occurrence: DE)
  Receive Date: 20130814
  Receipt Date: 20130814
  Transmission Date: 20140515
  Serious: Yes (Other)
  Sender: FDA-Public Use
  Company Number: DE-JNJFOC-20130804239

PATIENT
  Age: 63 Year
  Sex: Male

DRUGS (1)
  1. SEMPERA [Suspect]
     Indication: FUNGAL INFECTION
     Route: 065
     Dates: start: 201206

REACTIONS (1)
  - Paresis [Recovered/Resolved]
